FAERS Safety Report 22143070 (Version 6)
Quarter: 2023Q2

REPORT INFORMATION
  Report Type: Spontaneous
  Country: US (occurrence: US)
  Receive Date: 20230327
  Receipt Date: 20230522
  Transmission Date: 20230722
  Serious: No
  Sender: FDA-Public Use
  Company Number: US-PFIZER INC-PV202300052108

PATIENT
  Age: 45 Year
  Sex: Female
  Weight: 82.54 kg

DRUGS (3)
  1. GENOTROPIN [Suspect]
     Active Substance: SOMATROPIN
     Indication: Blood growth hormone abnormal
     Dosage: 4 MG, DAILY
     Dates: start: 20230319
  2. GENOTROPIN [Suspect]
     Active Substance: SOMATROPIN
     Indication: Hypothalamo-pituitary disorder
  3. GENOTROPIN [Suspect]
     Active Substance: SOMATROPIN
     Indication: Growth hormone deficiency

REACTIONS (5)
  - Wrong technique in device usage process [Unknown]
  - Device leakage [Unknown]
  - Poor quality device used [Unknown]
  - Device breakage [Unknown]
  - Device failure [Unknown]
